FAERS Safety Report 6686220-4 (Version None)
Quarter: 2010Q2

REPORT INFORMATION
  Report Type: 
  Country: None (occurrence: None)
  Receive Date: 20100419
  Receipt Date: 20100408
  Transmission Date: 20101027
  Serious: Yes (Hospitalization)
  Sender: FDA-Public Use
  Company Number: FR-SANOFI-AVENTIS-2010SA020236

PATIENT
  Sex: Female

DRUGS (2)
  1. LOVENOX [Suspect]
     Indication: THROMBOSIS PROPHYLAXIS
     Route: 058
     Dates: start: 20100125, end: 20100205
  2. LOVENOX [Suspect]
     Route: 058
     Dates: start: 20100125, end: 20100205

REACTIONS (2)
  - ABDOMINAL PAIN UPPER [None]
  - TRANSAMINASES INCREASED [None]
